FAERS Safety Report 4879499-2 (Version None)
Quarter: 2006Q1

REPORT INFORMATION
  Report Type: 
  Country: None (occurrence: None)
  Receive Date: 20060110
  Receipt Date: 20050105
  Transmission Date: 20060701
  Serious: Yes (Other)
  Sender: FDA-Public Use
  Company Number: GBWYE321207JAN05

PATIENT
  Age: 46 Year

DRUGS (5)
  1. MYAMBUTOL [Suspect]
     Indication: TUBERCULOSIS
     Dosage: 047
  2. ISONIAZID [Suspect]
     Indication: TUBERCULOSIS
     Dosage: 300 MG, QD
  3. RIFAMPICIN [Suspect]
     Indication: TUBERCULOSIS
  4. PYRAZINAMIDE [Suspect]
     Indication: TUBERCULOSIS
  5. PYRIDOXINE HCL [Concomitant]

REACTIONS (6)
  - DIZZINESS [None]
  - HALLUCINATION [None]
  - NAUSEA [None]
  - NEUROPATHY PERIPHERAL [None]
  - NIGHTMARE [None]
  - VOMITING [None]
